FAERS Safety Report 8967010 (Version 1)
Quarter: 2012Q4

REPORT INFORMATION
  Report Type: 
  Country: CA (occurrence: CA)
  Receive Date: 20121214
  Receipt Date: 20121214
  Transmission Date: 20130627
  Serious: Yes (Hospitalization, Disabling)
  Sender: FDA-Public Use
  Company Number: CA-B.I. PHARMACEUTICALS,INC./RIDGEFIELD-2012-CN-02562CN

PATIENT
  Age: 81 Year
  Sex: Female
  Weight: 122 kg

DRUGS (6)
  1. PRADAX [Suspect]
     Dosage: 220 mg
     Route: 048
  2. ATIVAN [Concomitant]
  3. CELEBREX [Concomitant]
  4. HYDROCHLOROTHIAZIDE [Concomitant]
  5. PRAVACHOL [Concomitant]
  6. SYNTHROID [Concomitant]

REACTIONS (2)
  - Thrombotic stroke [Unknown]
  - Cerebrovascular accident [Unknown]
